FAERS Safety Report 9203863 (Version 1)
Quarter: 2013Q2

REPORT INFORMATION
  Report Type: Spontaneous
  Country: HU (occurrence: HU)
  Receive Date: 20130402
  Receipt Date: 20130402
  Transmission Date: 20140414
  Serious: Yes (Other)
  Sender: FDA-Public Use
  Company Number: HU-AMGEN-HUNSP2013022826

PATIENT
  Age: 34 Year
  Sex: Male
  Weight: 45 kg

DRUGS (8)
  1. ENBREL [Suspect]
     Indication: PRODUCT USED FOR UNKNOWN INDICATION
     Dosage: 50 MG, WEEKLY
     Route: 058
     Dates: start: 20130221, end: 20130320
  2. METOPROLOL [Concomitant]
     Dosage: 4 MG, UNK
  3. DALNESSA [Concomitant]
     Dosage: UNK UNK, UNK
  4. METHOTREXAT                        /00113801/ [Concomitant]
     Dosage: UNK UNK, UNK
  5. DELAGIL [Concomitant]
     Dosage: 15 MG, WEEKLY
  6. FOLIC ACID [Concomitant]
     Dosage: UNK UNK, UNK
  7. CITROKALCIUM [Concomitant]
     Dosage: UNK UNK, UNK
  8. VITAMIN D /00107901/ [Concomitant]
     Dosage: UNK UNK, UNK

REACTIONS (6)
  - Amylase increased [Unknown]
  - Lipase increased [Unknown]
  - Blood urine present [Unknown]
  - Haemolysis [Unknown]
  - Blood lactate dehydrogenase increased [Unknown]
  - Joint injury [Unknown]
